FAERS Safety Report 23962563 (Version 1)
Quarter: 2024Q2

REPORT INFORMATION
  Report Type: Spontaneous
  Country: DE (occurrence: None)
  Receive Date: 20240611
  Receipt Date: 20240611
  Transmission Date: 20240716
  Serious: Yes (Hospitalization)
  Sender: FDA-Public Use
  Company Number: DE-ROCHE-3577466

PATIENT
  Age: 34 Year
  Sex: Female

DRUGS (4)
  1. TOCILIZUMAB [Suspect]
     Active Substance: TOCILIZUMAB
     Indication: Neuromyelitis optica spectrum disorder
     Route: 065
  2. SATRALIZUMAB [Suspect]
     Active Substance: SATRALIZUMAB
     Indication: Neuromyelitis optica spectrum disorder
     Route: 065
  3. INEBILIZUMAB [Suspect]
     Active Substance: INEBILIZUMAB
     Indication: Neuromyelitis optica spectrum disorder
     Route: 065
  4. RAVULIZUMAB [Suspect]
     Active Substance: RAVULIZUMAB
     Indication: Neuromyelitis optica spectrum disorder
     Route: 065

REACTIONS (1)
  - Neuromyelitis optica spectrum disorder [Unknown]

NARRATIVE: CASE EVENT DATE: 20220601
